FAERS Safety Report 20581954 (Version 1)
Quarter: 2022Q1

REPORT INFORMATION
  Report Type: Spontaneous
  Country: US (occurrence: None)
  Receive Date: 20220310
  Receipt Date: 20220310
  Transmission Date: 20220423
  Serious: Yes (Hospitalization)
  Sender: FDA-Public Use
  Company Number: None

PATIENT
  Age: 55 Year
  Sex: Male
  Weight: 65.77 kg

DRUGS (1)
  1. WARFARIN SODIUM [Suspect]
     Active Substance: WARFARIN SODIUM
     Indication: Stent placement
     Dosage: 2.5 MG BID PO
     Route: 048
     Dates: start: 20190615, end: 20191025

REACTIONS (5)
  - Gastrointestinal haemorrhage [None]
  - Haematemesis [None]
  - Blood loss anaemia [None]
  - Oesophagitis haemorrhagic [None]
  - Drug ineffective [None]

NARRATIVE: CASE EVENT DATE: 20191025
